FAERS Safety Report 22195210 (Version 3)
Quarter: 2023Q2

REPORT INFORMATION
  Report Type: Spontaneous
  Country: US (occurrence: US)
  Receive Date: 20230411
  Receipt Date: 20230430
  Transmission Date: 20230721
  Serious: No
  Sender: FDA-Public Use
  Company Number: US-SA-SAC20230407000677

PATIENT
  Age: 35 Year
  Sex: Female

DRUGS (1)
  1. CABLIVI [Suspect]
     Active Substance: CAPLACIZUMAB-YHDP
     Indication: Thrombotic microangiopathy
     Dosage: 11 MG, QD
     Route: 058
     Dates: start: 20230329

REACTIONS (8)
  - Injection site irritation [Unknown]
  - Injection site rash [Unknown]
  - Injection site erythema [Unknown]
  - Irritability [Unknown]
  - Platelet count decreased [Unknown]
  - Emotional distress [Unknown]
  - Gingival bleeding [Not Recovered/Not Resolved]
  - Product use in unapproved indication [Unknown]

NARRATIVE: CASE EVENT DATE: 20230101
